FAERS Safety Report 6804849-7 (Version None)
Quarter: 2010Q2

REPORT INFORMATION
  Report Type: 
  Country: None (occurrence: None)
  Receive Date: 20100628
  Receipt Date: 20070528
  Transmission Date: 20101027
  Serious: No
  Sender: FDA-Public Use
  Company Number: US-PFIZER INC-2007044741

PATIENT
  Sex: Female
  Weight: 85.454 kg

DRUGS (2)
  1. GENOTROPIN [Suspect]
     Indication: GROWTH HORMONE DEFICIENCY
     Dates: start: 20070501
  2. AMBIEN [Concomitant]
     Indication: INSOMNIA

REACTIONS (5)
  - ASTHENIA [None]
  - FATIGUE [None]
  - INCORRECT STORAGE OF DRUG [None]
  - MALAISE [None]
  - SOMNOLENCE [None]
